APPROVED DRUG PRODUCT: PREDNISONE
Active Ingredient: PREDNISONE
Strength: 5MG
Dosage Form/Route: TABLET;ORAL
Application: A087984 | Product #001
Applicant: UDL LABORATORIES INC
Approved: Jan 18, 1983 | RLD: No | RS: No | Type: DISCN